FAERS Safety Report 4678389-8 (Version None)
Quarter: 2005Q2

REPORT INFORMATION
  Report Type: 
  Country: None (occurrence: None)
  Receive Date: 20050527
  Receipt Date: 20050517
  Transmission Date: 20051028
  Serious: Yes (Death)
  Sender: FDA-Public Use
  Company Number: MK200505-0207-1

PATIENT
  Age: 71 Year
  Sex: Male
  Weight: 136.0791 kg

DRUGS (1)
  1. CONRAY [Suspect]
     Indication: COMPUTERISED TOMOGRAM ABDOMEN
     Dosage: 100 ML, ONE TIME, IV
     Route: 042
     Dates: start: 20050510, end: 20050510

REACTIONS (4)
  - ANAPHYLACTIC REACTION [None]
  - COMA [None]
  - CONTRAST MEDIA REACTION [None]
  - PROCEDURAL COMPLICATION [None]
